FAERS Safety Report 24718766 (Version 1)
Quarter: 2024Q4

REPORT INFORMATION
  Report Type: Spontaneous
  Country: GR (occurrence: GR)
  Receive Date: 20241210
  Receipt Date: 20241210
  Transmission Date: 20250115
  Serious: No
  Sender: PFIZER
  Company Number: GR-PFIZER INC-PV202400156916

PATIENT
  Age: 12 Year
  Sex: Female
  Weight: 33 kg

DRUGS (2)
  1. GENOTROPIN [Suspect]
     Active Substance: SOMATROPIN
     Indication: Growth hormone deficiency
     Dosage: 1.3 MG X 4 DAYS AND 1.2MGX 2 DAYS / 6 DAYS
     Route: 058
     Dates: start: 202403
  2. GENOTROPIN [Suspect]
     Active Substance: SOMATROPIN
     Dosage: 1.3MG X 4 DAYS AND 1.2MGX 2 DAYS / 6 DAYS
     Route: 058
     Dates: start: 202403

REACTIONS (2)
  - Device issue [Unknown]
  - Drug dose omission by device [Unknown]

NARRATIVE: CASE EVENT DATE: 20241201
